FAERS Safety Report 4301119-6 (Version None)
Quarter: 2004Q1

REPORT INFORMATION
  Report Type: 
  Country: None (occurrence: None)
  Receive Date: 20040219
  Receipt Date: 20040206
  Transmission Date: 20041129
  Serious: Yes (Disabling)
  Sender: FDA-Public Use
  Company Number: TCI2004A00267

PATIENT
  Age: 79 Year
  Sex: Female

DRUGS (7)
  1. ACTOS [Suspect]
     Indication: DIABETES MELLITUS NON-INSULIN-DEPENDENT
     Dosage: 30 MG (30 MG, 1 D) PER ORAL
     Route: 048
     Dates: start: 20000308, end: 20040107
  2. BLOPRESS (CANDESARTAN CILEXETIL) [Concomitant]
  3. GLYBURIDE [Concomitant]
  4. NIFEDIPINE [Concomitant]
  5. URSODEOXYCHOLIC  ACID [Concomitant]
  6. ATORVASTATIN [Concomitant]
  7. PRAVASTATIN SODIUM [Concomitant]

REACTIONS (2)
  - GLYCOSYLATED HAEMOGLOBIN INCREASED [None]
  - MYOCARDIAL INFARCTION [None]
